FAERS Safety Report 15021896 (Version 2)
Quarter: 2018Q2

REPORT INFORMATION
  Report Type: Spontaneous
  Country: US (occurrence: US)
  Receive Date: 20180618
  Receipt Date: 20180629
  Transmission Date: 20180711
  Serious: No
  Sender: FDA-Public Use
  Company Number: US-SA-2017SA267860

PATIENT
  Age: 62 Year
  Sex: Female
  Weight: 133 kg

DRUGS (3)
  1. TAXOTERE [Suspect]
     Active Substance: DOCETAXEL
     Indication: BREAST CANCER FEMALE
     Dosage: 36 MG/M2,QCY
     Route: 042
     Dates: start: 20110805, end: 20110805
  2. TAXOTERE [Suspect]
     Active Substance: DOCETAXEL
     Dosage: 36 MG/M2,QCY
     Route: 042
     Dates: start: 20120113, end: 20120113
  3. CAPECITABINE. [Concomitant]
     Active Substance: CAPECITABINE
     Dosage: UNK, UNK
     Route: 065

REACTIONS (2)
  - Psychological trauma [Unknown]
  - Alopecia [Recovering/Resolving]

NARRATIVE: CASE EVENT DATE: 20120720
